FAERS Safety Report 5625078-9 (Version None)
Quarter: 2008Q1

REPORT INFORMATION
  Report Type: 
  Country: None (occurrence: None)
  Receive Date: 20080208
  Receipt Date: 20080128
  Transmission Date: 20080703
  Serious: Yes (Disabling, Congenital Anomaly)
  Sender: FDA-Public Use
  Company Number: 100#08#2008-00572

PATIENT
  Sex: Male

DRUGS (2)
  1. CARBAMAZEPINE [Suspect]
     Indication: DRUG EXPOSURE DURING PREGNANCY
     Dosage: TRANSPLACENTAL
     Route: 064
  2. VALPROIC ACID [Suspect]
     Indication: DRUG EXPOSURE DURING PREGNANCY
     Dosage: TRANSPLACENTAL
     Route: 064

REACTIONS (14)
  - BODY HEIGHT BELOW NORMAL [None]
  - BONE DISORDER [None]
  - CAESAREAN SECTION [None]
  - CONGENITAL ANOMALY [None]
  - CONGENITAL NAIL DISORDER [None]
  - CONVULSION [None]
  - DRUG EXPOSURE DURING PREGNANCY [None]
  - DYSMORPHISM [None]
  - FOETAL ANTICONVULSANT SYNDROME [None]
  - HYPERTELORISM OF ORBIT [None]
  - LIMB REDUCTION DEFECT [None]
  - LIP DISORDER [None]
  - MICROGNATHIA [None]
  - NEURODEVELOPMENTAL DISORDER [None]
